FAERS Safety Report 6383522-6 (Version None)
Quarter: 2009Q4

REPORT INFORMATION
  Report Type: 
  Country: None (occurrence: None)
  Receive Date: 20091001
  Receipt Date: 20090921
  Transmission Date: 20100525
  Serious: Yes (Other)
  Sender: FDA-Public Use
  Company Number: FR-ROCHE-645040

PATIENT
  Sex: Male
  Weight: 85 kg

DRUGS (7)
  1. MIRCERA [Suspect]
     Dosage: ONE ONLY ADMINISTRATION DOSE: 120 UG
     Route: 058
     Dates: start: 20090621, end: 20090621
  2. INEGY [Suspect]
     Dosage: DOSE: IN THE EVENING
     Route: 048
  3. STAGID [Concomitant]
     Dosage: DOSE: 3 UNIT PER 24 HOURS
     Route: 048
  4. APROVEL [Concomitant]
     Indication: HYPERTENSION
     Dosage: REPORTED AS APROVEL 150 DOSE: 1 UNIT
     Route: 048
  5. ASASANTINE [Concomitant]
     Indication: PLATELET AGGREGATION INHIBITION
     Dosage: REPORTED AS ASASANTINE LP 200/25 DOSE: 1 UNIT TWICE
     Route: 048
  6. UN ALFA [Concomitant]
     Dosage: DOSE: 1 TABLET PER DAY
     Route: 048
  7. TARDYFERON [Concomitant]
     Indication: ANAEMIA
     Dosage: DOSE: IN THE MORNING
     Route: 048

REACTIONS (2)
  - ARTHRALGIA [None]
  - MYALGIA [None]
